FAERS Safety Report 8002101-8 (Version None)
Quarter: 2011Q4

REPORT INFORMATION
  Report Type: 
  Country: None (occurrence: None)
  Receive Date: 20111222
  Receipt Date: 20111219
  Transmission Date: 20120403
  Serious: Yes (Other)
  Sender: FDA-Public Use
  Company Number: US-PFIZER INC-2011308827

PATIENT

DRUGS (3)
  1. LINEZOLID [Suspect]
     Indication: TUBERCULOSIS
     Dosage: UNK
  2. ETHIONAMIDE [Suspect]
     Indication: TUBERCULOSIS
     Dosage: UNK
  3. MOXIFLOXACIN [Suspect]
     Indication: TUBERCULOSIS
     Dosage: UNK

REACTIONS (2)
  - DISEASE PROGRESSION [None]
  - HYPOACUSIS [None]
